FAERS Safety Report 8846819 (Version 1)
Quarter: 2012Q4

REPORT INFORMATION
  Report Type: 
  Country: US (occurrence: US)
  Receive Date: 20121018
  Receipt Date: 20121018
  Transmission Date: 20130627
  Serious: No
  Sender: FDA-Public Use
  Company Number: US-PFIZER INC-2012257359

PATIENT
  Sex: Male

DRUGS (2)
  1. ARTHROTEC [Suspect]
     Dosage: UNK
  2. ZOLOFT [Concomitant]
     Dosage: UNK

REACTIONS (1)
  - Pollakiuria [Unknown]
